FAERS Safety Report 13098632 (Version 1)
Quarter: 2017Q1

REPORT INFORMATION
  Report Type: Spontaneous
  Country: US (occurrence: US)
  Receive Date: 20170109
  Receipt Date: 20170109
  Transmission Date: 20170428
  Serious: Yes (Hospitalization)
  Sender: FDA-Public Use
  Company Number: US-ELI_LILLY_AND_COMPANY-US201612011134

PATIENT
  Age: 60 Year
  Sex: Male

DRUGS (6)
  1. HUMALOG [Suspect]
     Active Substance: INSULIN LISPRO
     Dosage: UNK, QID
     Route: 065
  2. HUMALOG [Suspect]
     Active Substance: INSULIN LISPRO
     Indication: TYPE 1 DIABETES MELLITUS
     Dosage: 4 U (PLUS 1 UNIT PER 15 GRAMS OF CARBOHYDRATES), UNKNOWN
     Route: 065
  3. LANTUS [Concomitant]
     Active Substance: INSULIN GLARGINE
  4. HUMALOG [Suspect]
     Active Substance: INSULIN LISPRO
     Indication: TYPE 1 DIABETES MELLITUS
     Dosage: UNK, UNKNOWN
     Route: 065
     Dates: start: 2009
  5. HUMALOG [Suspect]
     Active Substance: INSULIN LISPRO
     Indication: TYPE 1 DIABETES MELLITUS
     Dosage: UNK, QID
     Route: 065
     Dates: start: 2015
  6. HUMALOG [Suspect]
     Active Substance: INSULIN LISPRO
     Dosage: UNK, QID
     Route: 065

REACTIONS (11)
  - Dysstasia [Recovered/Resolved]
  - Viral infection [Unknown]
  - Blood glucose decreased [Unknown]
  - Vision blurred [Recovering/Resolving]
  - Feeling abnormal [Recovered/Resolved]
  - Weight increased [Unknown]
  - Skin ulcer [Recovering/Resolving]
  - Brain oedema [Unknown]
  - Amnesia [Not Recovered/Not Resolved]
  - Decreased activity [Unknown]
  - Blood glucose increased [Unknown]

NARRATIVE: CASE EVENT DATE: 2009
